FAERS Safety Report 13645971 (Version 1)
Quarter: 2017Q2

REPORT INFORMATION
  Report Type: Spontaneous
  Country: US (occurrence: US)
  Receive Date: 20170612
  Receipt Date: 20170612
  Transmission Date: 20170830
  Serious: Yes (Hospitalization)
  Sender: FDA-Public Use
  Company Number: None

PATIENT
  Age: 67 Year
  Sex: Male

DRUGS (1)
  1. BEVACIZUMAB [Suspect]
     Active Substance: BEVACIZUMAB
     Indication: LUNG ADENOCARCINOMA
     Dosage: OTHER
     Route: 042
     Dates: start: 20161213, end: 20170410

REACTIONS (2)
  - Pulmonary embolism [None]
  - Dyspnoea exertional [None]

NARRATIVE: CASE EVENT DATE: 20170410
